FAERS Safety Report 9506367 (Version 2)
Quarter: 2014Q1

REPORT INFORMATION
  Report Type: Spontaneous
  Country: US (occurrence: None)
  Receive Date: 20130301
  Receipt Date: 20140304
  Transmission Date: 20141002
  Serious: Yes (Life-Threatening, Hospitalization, Other)
  Sender: FDA-Public Use
  Company Number: RB-47622-2012

PATIENT
  Age: 30 Month
  Sex: Female

DRUGS (1)
  1. SUBOXONE [Suspect]
     Indication: ACCIDENTAL EXPOSURE TO PRODUCT
     Dosage: TOTAL
     Route: 048
     Dates: start: 201209, end: 201209

REACTIONS (5)
  - Accidental exposure to product [None]
  - Somnolence [None]
  - Miosis [None]
  - Dysarthria [None]
  - Lethargy [None]
